FAERS Safety Report 13098237 (Version 1)
Quarter: 2017Q1

REPORT INFORMATION
  Report Type: Report from Study
  Country: None (occurrence: BR)
  Receive Date: 20170109
  Receipt Date: 20170109
  Transmission Date: 20170428
  Serious: Yes (Hospitalization, Other)
  Sender: FDA-Public Use
  Company Number: BR-ABBVIE-16K-020-1825099-00

PATIENT
  Age: 29 Year
  Sex: Female
  Weight: 54 kg

DRUGS (5)
  1. DICLOFENAC/CHOLESTYRAMINE (FLOTAC) [Concomitant]
     Indication: ARTHRITIS
     Dosage: 1-2 TABLETS
     Route: 048
     Dates: start: 2015
  2. PREDNISONE. [Concomitant]
     Active Substance: PREDNISONE
     Indication: ARTHRITIS
     Route: 048
     Dates: start: 2014
  3. PANTOPRAZOLE [Concomitant]
     Active Substance: PANTOPRAZOLE SODIUM
     Indication: GASTRIC DISORDER
     Route: 048
     Dates: start: 201612
  4. HUMIRA [Suspect]
     Active Substance: ADALIMUMAB
     Indication: PSORIATIC ARTHROPATHY
     Route: 058
     Dates: start: 20161128, end: 20161128
  5. ACETYLSALICYLIC ACID (AAS) [Concomitant]
     Indication: CEREBROVASCULAR ACCIDENT
     Route: 048
     Dates: start: 201608

REACTIONS (9)
  - Pneumonia [Not Recovered/Not Resolved]
  - Local swelling [Unknown]
  - Pyrexia [Not Recovered/Not Resolved]
  - Lymphoma [Not Recovered/Not Resolved]
  - Infection [Recovered/Resolved]
  - Abdominal pain [Not Recovered/Not Resolved]
  - Tuberculosis [Unknown]
  - Nausea [Unknown]
  - Full blood count abnormal [Unknown]

NARRATIVE: CASE EVENT DATE: 2016
